FAERS Safety Report 10063017 (Version 2)
Quarter: 2014Q2

REPORT INFORMATION
  Report Type: Spontaneous
  Country: ES (occurrence: ES)
  Receive Date: 20140407
  Receipt Date: 20140502
  Transmission Date: 20141212
  Serious: Yes (Hospitalization, Other)
  Sender: FDA-Public Use
  Company Number: ES-BRISTOL-MYERS SQUIBB COMPANY-20590402

PATIENT
  Age: 61 Year
  Sex: Male
  Weight: 123 kg

DRUGS (4)
  1. BYDUREON [Suspect]
     Indication: TYPE 2 DIABETES MELLITUS
     Dosage: NO OF INJ:2
     Route: 058
     Dates: start: 20140227, end: 20140306
  2. FENOFIBRATE [Suspect]
     Indication: DYSLIPIDAEMIA
  3. ATORVASTATIN [Suspect]
     Indication: DYSLIPIDAEMIA
  4. LANTUS [Concomitant]

REACTIONS (1)
  - Hepatitis acute [Recovered/Resolved with Sequelae]
